FAERS Safety Report 5616691-3 (Version None)
Quarter: 2008Q1

REPORT INFORMATION
  Report Type: 
  Country: None (occurrence: None)
  Receive Date: 20080207
  Receipt Date: 20080129
  Transmission Date: 20080703
  Serious: Yes (Hospitalization, Other)
  Sender: FDA-Public Use
  Company Number: PHHO2004JP14788

PATIENT
  Age: 72 Year
  Sex: Male
  Weight: 82 kg

DRUGS (12)
  1. DIOVAN [Suspect]
     Indication: HYPERTENSION
     Dosage: 80 MG, QD
     Route: 048
     Dates: start: 20030314
  2. ASPIRIN [Concomitant]
     Indication: ANGINA PECTORIS
     Dosage: 200 MG, UNK
     Route: 048
  3. ASPIRIN [Concomitant]
     Dosage: 100 MG, UNK
     Route: 048
  4. AMLODIPINE BESYLATE [Concomitant]
     Indication: HYPERTENSION
     Dosage: 5 MG, UNK
     Route: 048
     Dates: start: 19980303
  5. TANATRIL [Concomitant]
     Indication: HYPERTENSION
     Dosage: 10 MG, UNK
     Route: 048
     Dates: start: 19990201
  6. ASPENON [Suspect]
     Indication: ATRIAL FIBRILLATION
     Dosage: 60MG
     Route: 048
     Dates: start: 20001016, end: 20040320
  7. ASPENON [Suspect]
     Dosage: 60 MG, UNK
     Route: 048
     Dates: start: 20051121
  8. VASOLAN [Suspect]
     Indication: ATRIAL FIBRILLATION
     Dosage: 120 MG, UNK
     Route: 048
     Dates: start: 20001016, end: 20040320
  9. HORIZON [Concomitant]
     Indication: INSOMNIA
     Dosage: 5 MG, UNK
     Route: 048
     Dates: start: 20040524
  10. LASIX [Concomitant]
     Indication: OEDEMA
     Dosage: 20 MG, UNK
     Route: 048
     Dates: start: 20051121
  11. ARTIST [Concomitant]
     Indication: ATRIAL FIBRILLATION
     Dosage: 10 MG, UNK
     Route: 048
     Dates: start: 20051214
  12. TICLOPIDINE HCL [Concomitant]
     Indication: STENT PLACEMENT
     Dosage: 200 MG, UNK
     Route: 048
     Dates: start: 20051211

REACTIONS (10)
  - ALTERED STATE OF CONSCIOUSNESS [None]
  - ATRIAL FLUTTER [None]
  - BRADYCARDIA [None]
  - CARDIAC FAILURE [None]
  - CARDIOVERSION [None]
  - CORONARY ARTERY STENOSIS [None]
  - DYSPNOEA [None]
  - HEPATIC ENCEPHALOPATHY [None]
  - OEDEMA PERIPHERAL [None]
  - STENT PLACEMENT [None]
